FAERS Safety Report 9919126 (Version 3)
Quarter: 2014Q1

REPORT INFORMATION
  Report Type: Spontaneous
  Country: GB (occurrence: GB)
  Receive Date: 20140224
  Receipt Date: 20140326
  Transmission Date: 20141002
  Serious: Yes (Other)
  Sender: FDA-Public Use
  Company Number: GB-TEVA-440011ISR

PATIENT
  Sex: Female

DRUGS (2)
  1. TEVA UK DIAZEPAM [Suspect]
     Indication: CONVULSION
     Dosage: 1-2 MG, INCREASING TO 8MG AT ONE POINT
     Route: 065
  2. TEVA UK DIAZEPAM [Suspect]
     Dosage: 1-2 MG
     Route: 065

REACTIONS (4)
  - Convulsion [Recovered/Resolved]
  - Drug effect decreased [Recovered/Resolved]
  - Dizziness [Recovered/Resolved]
  - Therapeutic response unexpected with drug substitution [Recovered/Resolved]
